FAERS Safety Report 9247014 (Version 2)
Quarter: 2013Q2

REPORT INFORMATION
  Report Type: Spontaneous
  Country: US (occurrence: US)
  Receive Date: 20130423
  Receipt Date: 20130617
  Transmission Date: 20140414
  Serious: Yes (Death, Hospitalization, Disabling, Other)
  Sender: FDA-Public Use
  Company Number: US-AMGEN-USASP2013027486

PATIENT
  Age: 62 Year
  Sex: Female

DRUGS (8)
  1. ENBREL [Suspect]
     Indication: PRODUCT USED FOR UNKNOWN INDICATION
     Dosage: 50 MG, QWK
     Route: 058
     Dates: start: 201303
  2. METHOTREXATE [Concomitant]
     Dosage: 2.5 MG, UNK
  3. LYRICA [Concomitant]
     Dosage: 75 MG, UNK
  4. LEVOTHYROXIN [Concomitant]
     Dosage: 88 MUG, UNK
  5. TRIAMTERENE AND HYDROCHLOROTHIAZID [Concomitant]
     Dosage: 37.5-25, UNK
  6. POTASSIUM [Concomitant]
     Dosage: 75 MG, UNK
  7. ZANAFLEX [Concomitant]
     Dosage: 2 MG, UNK
  8. CRANBERRY                          /01512301/ [Concomitant]
     Dosage: UNK

REACTIONS (11)
  - Pain [Recovered/Resolved]
  - Swelling [Recovered/Resolved]
  - Activities of daily living impaired [Recovered/Resolved]
  - Abasia [Recovered/Resolved]
  - Hallucination [Unknown]
  - Large intestinal haemorrhage [Unknown]
  - Dehydration [Unknown]
  - Blood glucose increased [Unknown]
  - Thrombosis [Unknown]
  - Pulmonary embolism [Fatal]
  - Pneumonia [Unknown]
